FAERS Safety Report 19173633 (Version 2)
Quarter: 2021Q2

REPORT INFORMATION
  Report Type: Spontaneous
  Country: FR (occurrence: FR)
  Receive Date: 20210423
  Receipt Date: 20210505
  Transmission Date: 20210717
  Serious: Yes (Other)
  Sender: FDA-Public Use
  Company Number: NVSC2021FR086690

PATIENT
  Age: 85 Year
  Sex: Male

DRUGS (4)
  1. CALCIUM [Concomitant]
     Active Substance: CALCIUM
     Indication: MINERAL SUPPLEMENTATION
     Dosage: UNK
     Route: 065
  2. DECAPEPTYL (TRIPTORELIN EMBONATE) [Suspect]
     Active Substance: TRIPTORELIN PAMOATE
     Indication: NEOPLASM PROSTATE
     Dosage: UNK
     Route: 065
     Dates: start: 201509
  3. ACLASTA [Suspect]
     Active Substance: ZOLEDRONIC ACID
     Indication: BONE LOSS
     Dosage: UNK
     Route: 065
  4. DECAPEPTYL (TRIPTORELIN EMBONATE) [Suspect]
     Active Substance: TRIPTORELIN PAMOATE
     Indication: METASTASES TO LUNG
     Dosage: UNK
     Route: 065

REACTIONS (6)
  - Product administration error [Unknown]
  - Blindness unilateral [Recovered/Resolved]
  - Bone loss [Unknown]
  - General physical health deterioration [Recovered/Resolved]
  - Hypersensitivity [Unknown]
  - Drug ineffective [Unknown]

NARRATIVE: CASE EVENT DATE: 2019
